FAERS Safety Report 16472739 (Version 2)
Quarter: 2019Q3

REPORT INFORMATION
  Report Type: Spontaneous
  Country: JP (occurrence: JP)
  Receive Date: 20190625
  Receipt Date: 20190816
  Transmission Date: 20191004
  Serious: Yes (Death, Life-Threatening, Hospitalization, Other)
  Sender: FDA-Public Use
  Company Number: JP-BRISTOL-MYERS SQUIBB COMPANY-BMS-2019-019651

PATIENT
  Age: 62 Year
  Sex: Male
  Weight: 40 kg

DRUGS (4)
  1. POLAPREZINC [Concomitant]
     Active Substance: POLAPREZINC
     Indication: TASTE DISORDER
     Dosage: 75 MILLIGRAM, Q12H
     Route: 048
     Dates: start: 20180802
  2. MAGMITT [Concomitant]
     Active Substance: MAGNESIUM OXIDE
     Indication: CONSTIPATION
     Dosage: 250 MILLIGRAM, Q8H
     Route: 048
     Dates: start: 20180524, end: 20190322
  3. CINAL [Concomitant]
     Active Substance: ASCORBIC ACID\CALCIUM PANTOTHENATE
     Indication: PIGMENTATION DISORDER
     Dosage: 1 DOSAGE FORM, Q12H
     Route: 048
     Dates: start: 20180905, end: 20190304
  4. OPDIVO [Suspect]
     Active Substance: NIVOLUMAB
     Indication: HEAD AND NECK CANCER METASTATIC
     Dosage: 240 MG, Q2W
     Route: 041
     Dates: start: 20190115, end: 20190127

REACTIONS (4)
  - Influenza virus test positive [Unknown]
  - Malignant neoplasm progression [Fatal]
  - Pyrexia [Unknown]
  - Demyelination [Not Recovered/Not Resolved]

NARRATIVE: CASE EVENT DATE: 20190213
